FAERS Safety Report 24562106 (Version 1)
Quarter: 2024Q4

REPORT INFORMATION
  Report Type: Spontaneous
  Country: AR (occurrence: AR)
  Receive Date: 20241029
  Receipt Date: 20241029
  Transmission Date: 20250115
  Serious: Yes (Death, Hospitalization, Other)
  Sender: MERCK
  Company Number: AR-009507513-2410ARG012567

PATIENT
  Age: 49 Year
  Sex: Male

DRUGS (2)
  1. PEMBROLIZUMAB [Suspect]
     Active Substance: PEMBROLIZUMAB
     Indication: Renal cell carcinoma
     Dosage: PEMBROLIZUMAB 200 MG, EVERY 21 D?AS
  2. AXITINIB [Suspect]
     Active Substance: AXITINIB
     Indication: Renal cell carcinoma
     Dosage: 5 MILLIGRAM, BID

REACTIONS (7)
  - Gastrointestinal haemorrhage [Fatal]
  - Neoplasm skin [Unknown]
  - Intratumoural haematoma [Unknown]
  - Activated partial thromboplastin time prolonged [Unknown]
  - Puncture site haemorrhage [Unknown]
  - Acquired factor VIII deficiency [Unknown]
  - Anti factor VIII antibody positive [Unknown]

NARRATIVE: CASE EVENT DATE: 20240101
